FAERS Safety Report 8066673-X (Version None)
Quarter: 2011Q4

REPORT INFORMATION
  Report Type: 
  Country: None (occurrence: None)
  Receive Date: 20111221
  Receipt Date: 20101207
  Transmission Date: 20120403
  Serious: Yes (Hospitalization)
  Sender: FDA-Public Use
  Company Number: PHHY2010US83358

PATIENT
  Age: 29 Year
  Sex: Male
  Weight: 34.9 kg

DRUGS (5)
  1. METHADONE HCL [Concomitant]
  2. CARISOPRODOL [Concomitant]
  3. ATIVAN [Concomitant]
  4. OPANA [Concomitant]
  5. EXJADE [Suspect]
     Indication: MYELODYSPLASTIC SYNDROME
     Dosage: 10000 MG, QD, ORAL
     Route: 048
     Dates: start: 20100801, end: 20101001

REACTIONS (3)
  - ANAEMIA [None]
  - DYSPNOEA EXERTIONAL [None]
  - FATIGUE [None]
